FAERS Safety Report 12628389 (Version 1)
Quarter: 2016Q3

REPORT INFORMATION
  Report Type: Spontaneous
  Country: US (occurrence: US)
  Receive Date: 20160808
  Receipt Date: 20160808
  Transmission Date: 20161109
  Serious: No
  Sender: FDA-Public Use
  Company Number: US-BEH-2016071924

PATIENT
  Age: 74 Year
  Sex: Male

DRUGS (1)
  1. HIZENTRA [Suspect]
     Active Substance: HUMAN IMMUNOGLOBULIN G
     Indication: IMMUNODEFICIENCY
     Dosage: 50 ML, QW
     Route: 065
     Dates: start: 201602

REACTIONS (2)
  - Glycosylated haemoglobin increased [Unknown]
  - Anaemia [Unknown]
